FAERS Safety Report 20316913 (Version 1)
Quarter: 2022Q1

REPORT INFORMATION
  Report Type: Spontaneous
  Country: US (occurrence: US)
  Receive Date: 20220110
  Receipt Date: 20220110
  Transmission Date: 20220423
  Serious: No
  Sender: FDA-Public Use
  Company Number: US-009507513-2112USA007193

PATIENT
  Sex: Female

DRUGS (3)
  1. VERQUVO [Suspect]
     Active Substance: VERICIGUAT
     Dosage: UNK, BEFORE 10MG REGIMEN
     Route: 048
  2. VERQUVO [Suspect]
     Active Substance: VERICIGUAT
     Dosage: 10 MILLIGRAM, UNK
     Route: 048
  3. VERQUVO [Suspect]
     Active Substance: VERICIGUAT
     Dosage: UNK, AFTER 10MG REGIMEN
     Route: 048

REACTIONS (1)
  - Dehydration [Unknown]
